FAERS Safety Report 11490981 (Version 4)
Quarter: 2015Q4

REPORT INFORMATION
  Report Type: Report from Study
  Country: US (occurrence: US)
  Receive Date: 20150910
  Receipt Date: 20151022
  Transmission Date: 20160304
  Serious: Yes (Death, Hospitalization, Other)
  Sender: FDA-Public Use
  Company Number: US-GILEAD-2015-0163203

PATIENT
  Age: 65 Year
  Sex: Male

DRUGS (16)
  1. SILDENAFIL. [Suspect]
     Active Substance: SILDENAFIL
     Indication: PRODUCT USED FOR UNKNOWN INDICATION
     Dosage: 20 MG, TID
     Route: 065
  2. SPIRIVA [Concomitant]
     Active Substance: TIOTROPIUM BROMIDE MONOHYDRATE
  3. METOPROLOL [Concomitant]
     Active Substance: METOPROLOL
  4. LISINOPRIL. [Concomitant]
     Active Substance: LISINOPRIL
  5. LASIX [Concomitant]
     Active Substance: FUROSEMIDE
  6. CLOZAPINE. [Concomitant]
     Active Substance: CLOZAPINE
  7. LEVAQUIN [Concomitant]
     Active Substance: LEVOFLOXACIN
  8. POTASSIUM [Concomitant]
     Active Substance: POTASSIUM
  9. OMEPRAZOLE. [Concomitant]
     Active Substance: OMEPRAZOLE
  10. METFORMIN [Concomitant]
     Active Substance: METFORMIN HYDROCHLORIDE
  11. PREDNISONE. [Concomitant]
     Active Substance: PREDNISONE
  12. AMBRISENTAN [Suspect]
     Active Substance: AMBRISENTAN
     Indication: PULMONARY ARTERIAL HYPERTENSION
     Dosage: 5 MG, QD
     Route: 065
     Dates: start: 20150611, end: 20150814
  13. ADVAIR HFA [Concomitant]
     Active Substance: FLUTICASONE PROPIONATE\SALMETEROL XINAFOATE
  14. VITAMIN A                          /00056001/ [Concomitant]
     Active Substance: RETINOL
  15. AMBRISENTAN [Suspect]
     Active Substance: AMBRISENTAN
     Indication: LUNG DISORDER
  16. AMLODIPINE [Concomitant]
     Active Substance: AMLODIPINE BESYLATE

REACTIONS (9)
  - Swelling [Unknown]
  - Oedema peripheral [Unknown]
  - Respiratory failure [Unknown]
  - Fluid retention [Recovered/Resolved]
  - Lung disorder [Fatal]
  - Pulmonary hypertension [Fatal]
  - Right ventricular failure [Fatal]
  - Oedema peripheral [Not Recovered/Not Resolved]
  - Pneumonia [Not Recovered/Not Resolved]
